FAERS Safety Report 8065478-3 (Version None)
Quarter: 2012Q1

REPORT INFORMATION
  Report Type: 
  Country: None (occurrence: None)
  Receive Date: 20120117
  Receipt Date: 20120109
  Transmission Date: 20120608
  Serious: Yes (Hospitalization, Other)
  Sender: FDA-Public Use
  Company Number: 2011SP000573

PATIENT
  Age: 83 Year
  Sex: Female

DRUGS (6)
  1. CEFEPIME [Suspect]
     Indication: ESCHERICHIA INFECTION
     Dosage: 1 GM;IV
     Route: 042
     Dates: start: 20111022, end: 20111027
  2. STREPTOCOCCUS FAECALIS [Concomitant]
  3. LEVOCETIRIZINE DIHYDROCHLORIDE [Suspect]
     Indication: PRURITUS GENERALISED
     Dosage: 2.5 MG;QD;PO
     Route: 048
     Dates: start: 20111026, end: 20111028
  4. NICORANDIL [Concomitant]
  5. OLOPATADINE HCL [Concomitant]
  6. VANCOMYCIN [Suspect]
     Indication: STAPHYLOCOCCAL INFECTION
     Dosage: 0.5 MG;IV
     Route: 042
     Dates: start: 20111025, end: 20111027

REACTIONS (4)
  - METABOLIC ENCEPHALOPATHY [None]
  - RENAL FAILURE [None]
  - PRURITUS GENERALISED [None]
  - CONTRAINDICATION TO MEDICAL TREATMENT [None]
